FAERS Safety Report 15549640 (Version 1)
Quarter: 2018Q4

REPORT INFORMATION
  Report Type: Spontaneous
  Country: PL (occurrence: PL)
  Receive Date: 20181025
  Receipt Date: 20181025
  Transmission Date: 20190205
  Serious: Yes (Hospitalization)
  Sender: FDA-Public Use
  Company Number: PL-NALPROPION PHARMACEUTICALS INC.-2018-005726

PATIENT

DRUGS (4)
  1. MYSIMBA (NALTREXONE HCL/BUPROPION HCL) PROLONGED-RELEASE TABLETS [Suspect]
     Active Substance: BUPROPION HYDROCHLORIDE\NALTREXONE HYDROCHLORIDE
     Dosage: 1 TAB, BID
     Route: 048
     Dates: start: 20180630, end: 20180709
  2. GLUCOPHAGE [Concomitant]
     Active Substance: METFORMIN HYDROCHLORIDE
     Indication: PRODUCT USED FOR UNKNOWN INDICATION
     Dosage: 1000 MG, 1X2 TABLETS
     Route: 048
     Dates: start: 2012
  3. INHIBACE                           /00498401/ [Concomitant]
     Indication: PRODUCT USED FOR UNKNOWN INDICATION
     Dosage: 1MG, 1 X HALF TABLET
     Route: 048
     Dates: start: 2014
  4. MYSIMBA (NALTREXONE HCL/BUPROPION HCL) PROLONGED-RELEASE TABLETS [Suspect]
     Active Substance: BUPROPION HYDROCHLORIDE\NALTREXONE HYDROCHLORIDE
     Indication: PRODUCT USED FOR UNKNOWN INDICATION
     Dosage: UNK

REACTIONS (3)
  - Blood pressure increased [Recovered/Resolved]
  - Hypertensive crisis [Recovered/Resolved]
  - Headache [Recovered/Resolved]

NARRATIVE: CASE EVENT DATE: 20180709
